FAERS Safety Report 20430115 (Version 1)
Quarter: 2022Q1

REPORT INFORMATION
  Report Type: Report from Study
  Country: FR (occurrence: FR)
  Receive Date: 20220204
  Receipt Date: 20220204
  Transmission Date: 20220424
  Serious: Yes (Hospitalization)
  Sender: FDA-Public Use
  Company Number: FR-SERVIER-S20003489

PATIENT

DRUGS (10)
  1. ONCASPAR [Suspect]
     Active Substance: PEGASPARGASE
     Dosage: 4850 IU, D4
     Route: 042
     Dates: start: 20190923, end: 20190923
  2. VINCRISTINE SULFATE [Suspect]
     Active Substance: VINCRISTINE SULFATE
     Indication: Acute lymphocytic leukaemia
     Dosage: 2 MG (D1, D8, D15, D22)
     Route: 042
     Dates: start: 20190920, end: 20191011
  3. DAUNORUBICIN HYDROCHLORIDE [Suspect]
     Active Substance: DAUNORUBICIN HYDROCHLORIDE
     Indication: Acute lymphocytic leukaemia
     Dosage: 60 MG (D1, D8, D15, D22)
     Route: 042
     Dates: start: 20190920, end: 20191011
  4. DEXAMETHASONE [Suspect]
     Active Substance: DEXAMETHASONE
     Indication: Acute lymphocytic leukaemia
     Dosage: 18 MG (D1 TO D7, D15 TO D21)
     Route: 042
     Dates: start: 20190920, end: 20191011
  5. METHOTREXATE [Suspect]
     Active Substance: METHOTREXATE
     Indication: Acute lymphocytic leukaemia
     Dosage: 15 MG (D1, D31)
     Route: 037
     Dates: start: 20190923, end: 20191030
  6. CYTARABINE [Suspect]
     Active Substance: CYTARABINE
     Indication: Acute lymphocytic leukaemia
     Dosage: 30 MG (D1, D31)
     Route: 037
     Dates: start: 20190923, end: 20191030
  7. CYTARABINE [Suspect]
     Active Substance: CYTARABINE
     Dosage: 145 MG (D31 TO D34, D38 TO D41).
     Dates: start: 20191030, end: 20191109
  8. HYDROCORTISONE [Suspect]
     Active Substance: HYDROCORTISONE
     Indication: Acute lymphocytic leukaemia
     Dosage: 15 MG (D1, D31)
     Route: 037
     Dates: start: 20190923, end: 20191030
  9. MERCAPTOPURINE [Suspect]
     Active Substance: MERCAPTOPURINE
     Indication: Acute lymphocytic leukaemia
     Dosage: 120 MG (D29, D42)
     Route: 042
     Dates: start: 20191028, end: 20191110
  10. CYCLOPHOSPHAMIDE [Suspect]
     Active Substance: CYCLOPHOSPHAMIDE
     Indication: Acute lymphocytic leukaemia
     Dosage: 1900 MG (D29)
     Route: 042
     Dates: start: 20191028

REACTIONS (2)
  - Febrile bone marrow aplasia [Recovered/Resolved]
  - Mucosal inflammation [Recovered/Resolved]

NARRATIVE: CASE EVENT DATE: 20191017
